FAERS Safety Report 20843988 (Version 1)
Quarter: 2022Q2

REPORT INFORMATION
  Report Type: Spontaneous
  Country: JP (occurrence: JP)
  Receive Date: 20220518
  Receipt Date: 20220518
  Transmission Date: 20220721
  Serious: Yes (Other)
  Sender: FDA-Public Use
  Company Number: JP-BRISTOL-MYERS SQUIBB COMPANY-2022-041845

PATIENT
  Age: 83 Year
  Sex: Female

DRUGS (2)
  1. VIDAZA [Suspect]
     Active Substance: AZACITIDINE
     Indication: Product used for unknown indication
     Route: 065
  2. VIDAZA [Suspect]
     Active Substance: AZACITIDINE
     Route: 065
     Dates: end: 20220426

REACTIONS (6)
  - Gastrointestinal haemorrhage [Not Recovered/Not Resolved]
  - Atrial fibrillation [Recovering/Resolving]
  - Arrhythmia [Not Recovered/Not Resolved]
  - Decreased appetite [Unknown]
  - Urethral pain [Unknown]
  - Myelosuppression [Unknown]

NARRATIVE: CASE EVENT DATE: 20211206
